FAERS Safety Report 21625811 (Version 1)
Quarter: 2022Q4

REPORT INFORMATION
  Report Type: Spontaneous
  Country: None (occurrence: US)
  Receive Date: 20221122
  Receipt Date: 20221122
  Transmission Date: 20230113
  Serious: No
  Sender: FDA-Public Use
  Company Number: XI-INSMED, INC.-2022-00434-US

PATIENT
  Sex: Female

DRUGS (1)
  1. ARIKAYCE [Suspect]
     Active Substance: AMIKACIN
     Indication: Mycobacterial infection
     Dosage: 590 MILLIGRAM, TIW
     Route: 055
     Dates: start: 20220214

REACTIONS (1)
  - Off label use [Unknown]
